FAERS Safety Report 18852586 (Version 1)
Quarter: 2021Q1

REPORT INFORMATION
  Report Type: Spontaneous
  Country: US (occurrence: US)
  Receive Date: 20210205
  Receipt Date: 20210205
  Transmission Date: 20210420
  Serious: Yes (Other)
  Sender: FDA-Public Use
  Company Number: US-GLAXOSMITHKLINE-US2021GSK015304

PATIENT
  Age: 59 Year
  Sex: Female

DRUGS (2)
  1. ZANTAC [Suspect]
     Active Substance: RANITIDINE HYDROCHLORIDE
     Indication: INTESTINAL ULCER
     Dosage: UNK UNK, QD
     Route: 048
     Dates: start: 198002, end: 198601
  2. ZANTAC [Suspect]
     Active Substance: RANITIDINE HYDROCHLORIDE
     Indication: INTESTINAL ULCER
     Dosage: UNK UNK, QD
     Route: 048
     Dates: start: 198002, end: 198601

REACTIONS (4)
  - Leukaemia [Unknown]
  - Squamous cell carcinoma [Unknown]
  - Lung neoplasm malignant [Unknown]
  - Skin cancer [Unknown]

NARRATIVE: CASE EVENT DATE: 20020909
